FAERS Safety Report 20123533 (Version 1)
Quarter: 2021Q4

REPORT INFORMATION
  Report Type: Spontaneous
  Country: JP (occurrence: JP)
  Receive Date: 20211129
  Receipt Date: 20211129
  Transmission Date: 20220303
  Serious: Yes (Other)
  Sender: FDA-Public Use
  Company Number: JP-SAKK-2021SA391590AA

PATIENT
  Age: 84 Year
  Sex: Female

DRUGS (2)
  1. KEVZARA [Suspect]
     Active Substance: SARILUMAB
     Indication: Rheumatoid arthritis
     Dosage: UNK
     Route: 058
  2. PREDNISOLONE [Concomitant]
     Active Substance: PREDNISOLONE
     Indication: Rheumatoid arthritis
     Dosage: 2.5 MG
     Route: 065

REACTIONS (7)
  - Necrotising fasciitis [Unknown]
  - Pain in extremity [Unknown]
  - Erythema [Unknown]
  - Skin necrosis [Unknown]
  - Purpura [Unknown]
  - Skin ulcer [Unknown]
  - Serratia infection [Unknown]
